FAERS Safety Report 10413878 (Version 1)
Quarter: 2014Q3

REPORT INFORMATION
  Report Type: Spontaneous
  Country: US (occurrence: US)
  Receive Date: 20140827
  Receipt Date: 20140827
  Transmission Date: 20150326
  Serious: No
  Sender: FDA-Public Use
  Company Number: US-GALDERMA-US14000349

PATIENT
  Age: 41 Year
  Sex: Male

DRUGS (4)
  1. CLOBEX [Suspect]
     Active Substance: CLOBETASOL PROPIONATE
     Dosage: 0.05%
     Route: 061
     Dates: start: 201309, end: 201401
  2. LOVAZA [Concomitant]
     Active Substance: OMEGA-3-ACID ETHYL ESTERS
     Indication: HIGH DENSITY LIPOPROTEIN
     Route: 048
  3. CLOBEX [Suspect]
     Active Substance: CLOBETASOL PROPIONATE
     Indication: DERMATITIS CONTACT
     Dosage: 0.05%
     Route: 061
     Dates: start: 201309, end: 201401
  4. BABY ASPIRIN [Concomitant]
     Active Substance: ASPIRIN
     Indication: CARDIOVASCULAR EVENT PROPHYLAXIS
     Route: 048

REACTIONS (1)
  - Drug ineffective [Not Recovered/Not Resolved]

NARRATIVE: CASE EVENT DATE: 201401
